FAERS Safety Report 5413084-9 (Version None)
Quarter: 2007Q3

REPORT INFORMATION
  Report Type: 
  Country: None (occurrence: None)
  Receive Date: 20070809
  Receipt Date: 20070801
  Transmission Date: 20080115
  Serious: Yes (Death, Life-Threatening, Hospitalization)
  Sender: FDA-Public Use
  Company Number: CERZ-10379

PATIENT
  Sex: Female
  Weight: 7 kg

DRUGS (7)
  1. CEREZYME [Suspect]
     Indication: GAUCHER'S DISEASE
     Dosage: 1000 UNITS Q2WKS IV
     Route: 042
     Dates: start: 20020220
  2. CEREZYME [Suspect]
     Indication: GAUCHER'S DISEASE
     Dosage: 1200 UNITS IV
     Route: 042
     Dates: end: 20030721
  3. PHENOBARBITAL TAB [Concomitant]
  4. MIDAZOLAM HCL [Concomitant]
  5. TPN [Concomitant]
  6. ALENDRONATE SODIUM [Concomitant]
  7. FAMOTIDINE [Concomitant]

REACTIONS (17)
  - BLOOD BILIRUBIN INCREASED [None]
  - BLOOD PRESSURE DECREASED [None]
  - BLOOD UREA INCREASED [None]
  - BODY TEMPERATURE DECREASED [None]
  - BRADYCARDIA [None]
  - C-REACTIVE PROTEIN INCREASED [None]
  - DISEASE PROGRESSION [None]
  - GAUCHER'S DISEASE [None]
  - HAEMATOCRIT DECREASED [None]
  - HAEMOGLOBIN DECREASED [None]
  - HEART RATE INCREASED [None]
  - HYPOTHERMIA [None]
  - HYPOTHYROIDISM [None]
  - NEUTROPHIL PERCENTAGE INCREASED [None]
  - OLIGURIA [None]
  - SEPSIS [None]
  - STAPHYLOCOCCAL INFECTION [None]
